FAERS Safety Report 18086937 (Version 1)
Quarter: 2020Q3

REPORT INFORMATION
  Report Type: Spontaneous
  Country: IN (occurrence: IN)
  Receive Date: 20200729
  Receipt Date: 20200729
  Transmission Date: 20201103
  Serious: Yes (Other)
  Sender: FDA-Public Use
  Company Number: None

PATIENT
  Age: 58 Year
  Sex: Male
  Weight: 88 kg

DRUGS (9)
  1. ECOSPORIN [Concomitant]
  2. CENTRUM SILVER [Concomitant]
     Active Substance: MINERALS\VITAMINS
  3. OLMEZEST ? AMLODIPINE AND OLMESARTAN [Concomitant]
     Active Substance: AMLODIPINE\OLMESARTAN
  4. PROLOMET (METOPROLOL) [Concomitant]
     Active Substance: METOPROLOL
  5. STORVAS [Concomitant]
  6. TECHNETIUM TC?99M [Suspect]
     Active Substance: TECHNETIUM TC-99M
     Indication: SCAN MYOCARDIAL PERFUSION
     Dates: start: 20200728, end: 20200728
  7. JARDIANCE [Concomitant]
     Active Substance: EMPAGLIFLOZIN
  8. AXCER [Concomitant]
     Active Substance: TICAGRELOR
  9. METFORMIN [Concomitant]
     Active Substance: METFORMIN HYDROCHLORIDE

REACTIONS (4)
  - Hypertension [None]
  - Blood pressure diastolic increased [None]
  - Headache [None]
  - Procedural complication [None]

NARRATIVE: CASE EVENT DATE: 20200728
